FAERS Safety Report 16227517 (Version 3)
Quarter: 2020Q1

REPORT INFORMATION
  Report Type: Report from Study
  Country: US (occurrence: US)
  Receive Date: 20190423
  Receipt Date: 20200103
  Transmission Date: 20200409
  Serious: No
  Sender: FDA-Public Use
  Company Number: PHEH2019US016771

PATIENT
  Sex: Female

DRUGS (4)
  1. ACITRETIN. [Suspect]
     Active Substance: ACITRETIN
     Indication: PRODUCT USED FOR UNKNOWN INDICATION
     Route: 065
  2. COSENTYX [Suspect]
     Active Substance: SECUKINUMAB
     Dosage: 300 MG, QMO
     Route: 058
  3. COSENTYX [Suspect]
     Active Substance: SECUKINUMAB
     Dosage: 300 MG, AT WEEKS 0, 1, 2, 3, AND 4. THEN INJECT 2 PENS (300MG) ONCE EVERY 4 WEEKS THEREAFTER)
     Route: 058
     Dates: start: 20190118
  4. COSENTYX [Suspect]
     Active Substance: SECUKINUMAB
     Indication: PSORIASIS
     Dosage: 300 MG, QMO
     Route: 058
     Dates: start: 20190117

REACTIONS (5)
  - Skin exfoliation [Not Recovered/Not Resolved]
  - Alopecia [Unknown]
  - Eye movement disorder [Unknown]
  - Mycobacterium tuberculosis complex test positive [Unknown]
  - Pruritus [Unknown]
